FAERS Safety Report 19222014 (Version 1)
Quarter: 2021Q2

REPORT INFORMATION
  Report Type: Spontaneous
  Country: US (occurrence: US)
  Receive Date: 20210505
  Receipt Date: 20210505
  Transmission Date: 20210717
  Serious: No
  Sender: FDA-Public Use
  Company Number: None

PATIENT
  Age: 63 Year
  Sex: Female

DRUGS (1)
  1. SOFOSBUVIR AND VELPATASVIR [Suspect]
     Active Substance: SOFOSBUVIR\VELPATASVIR
     Route: 048
     Dates: start: 202104

REACTIONS (5)
  - Therapy interrupted [None]
  - Hospitalisation [None]
  - Fatigue [None]
  - Haematocrit decreased [None]
  - Infection [None]

NARRATIVE: CASE EVENT DATE: 20210505
